FAERS Safety Report 24655409 (Version 1)
Quarter: 2024Q4

REPORT INFORMATION
  Report Type: Spontaneous
  Country: FR (occurrence: FR)
  Receive Date: 20241123
  Receipt Date: 20241123
  Transmission Date: 20250115
  Serious: Yes (Other)
  Sender: TEVA
  Company Number: None

PATIENT
  Age: 74 Year
  Sex: Male
  Weight: 89.5 kg

DRUGS (2)
  1. TRISENOX [Suspect]
     Active Substance: ARSENIC TRIOXIDE
     Indication: Acute promyelocytic leukaemia
     Dosage: ANTICANCER CURES,
     Route: 042
     Dates: start: 20230428, end: 20231226
  2. VESANOID [Concomitant]
     Active Substance: TRETINOIN
     Indication: Acute promyelocytic leukaemia
     Dosage: DURING ANTINEOPLASTIC TREATMENTS, EVERY 6 TO 8 WEEKS
     Route: 048
     Dates: start: 20230422

REACTIONS (1)
  - Peripheral sensorimotor neuropathy [Recovering/Resolving]

NARRATIVE: CASE EVENT DATE: 20230705
